FAERS Safety Report 4436601-4 (Version None)
Quarter: 2004Q3

REPORT INFORMATION
  Report Type: 
  Country: None (occurrence: None)
  Receive Date: 20040830
  Receipt Date: 20040713
  Transmission Date: 20050211
  Serious: No
  Sender: FDA-Public Use
  Company Number: US-BRISTOL-MYERS SQUIBB COMPANY-12639357

PATIENT
  Age: 32 Year
  Sex: Male

DRUGS (2)
  1. ABILIFY [Suspect]
     Indication: ANXIETY DISORDER
     Dosage: DECREASED TO 10 MG MAR-04; THEN DISCONTINUED MAY-04
     Dates: start: 20040201
  2. ABILIFY [Suspect]
     Indication: MENTAL IMPAIRMENT
     Dosage: DECREASED TO 10 MG MAR-04; THEN DISCONTINUED MAY-04
     Dates: start: 20040201

REACTIONS (1)
  - TREMOR [None]
